FAERS Safety Report 16412213 (Version 2)
Quarter: 2020Q2

REPORT INFORMATION
  Report Type: Report from Study
  Country: US (occurrence: US)
  Receive Date: 20190610
  Receipt Date: 20200522
  Transmission Date: 20200713
  Serious: Yes (Life-Threatening, Hospitalization, Other)
  Sender: FDA-Public Use
  Company Number: US-B.I. PHARMACEUTICALS,INC./RIDGEFIELD-2019-BI-025023

PATIENT
  Sex: Male

DRUGS (1)
  1. GLYXAMBI [Suspect]
     Active Substance: EMPAGLIFLOZIN\LINAGLIPTIN
     Indication: TYPE 2 DIABETES MELLITUS
     Dosage: 10 MG EMPAGLIFLOZIN/ 5 MG LINAGLIPTIN ONCE DAILY, TAKEN IN THE MORNING, WITH OR WITHOUT FOOD
     Route: 048
     Dates: start: 201506

REACTIONS (2)
  - Myocardial infarction [Unknown]
  - Hypoaesthesia [Unknown]
